FAERS Safety Report 6299246-X (Version None)
Quarter: 2009Q3

REPORT INFORMATION
  Report Type: 
  Country: None (occurrence: None)
  Receive Date: 20090806
  Receipt Date: 20090727
  Transmission Date: 20100115
  Serious: Yes (Other)
  Sender: FDA-Public Use
  Company Number: ES-JNJFOC-20090710002

PATIENT
  Sex: Female

DRUGS (6)
  1. REMICADE [Suspect]
     Indication: RHEUMATOID ARTHRITIS
     Route: 042
  2. STEROIDS NOS [Concomitant]
  3. METHOTREXATE [Concomitant]
  4. NSAIDS [Concomitant]
  5. BISPHOSPHONATES [Concomitant]
  6. CALCIUM AND VITAMIN D [Concomitant]

REACTIONS (1)
  - TUBERCULOSIS [None]
